FAERS Safety Report 17727071 (Version 1)
Quarter: 2020Q2

REPORT INFORMATION
  Report Type: Spontaneous
  Country: US (occurrence: US)
  Receive Date: 20200430
  Receipt Date: 20200430
  Transmission Date: 20200714
  Serious: No
  Sender: FDA-Public Use
  Company Number: US-DRREDDYS-USA/USA/20/0122251

PATIENT
  Age: 58 Year
  Sex: Male
  Weight: 74.25 kg

DRUGS (1)
  1. CLOPIDOGREL BISULFATE 75 MG [Suspect]
     Active Substance: CLOPIDOGREL BISULFATE
     Indication: MYOCARDIAL INFARCTION
     Route: 048
     Dates: start: 201911

REACTIONS (1)
  - Rash [Unknown]

NARRATIVE: CASE EVENT DATE: 202002
